FAERS Safety Report 20840655 (Version 1)
Quarter: 2022Q2

REPORT INFORMATION
  Report Type: Spontaneous
  Country: US (occurrence: US)
  Receive Date: 20220517
  Receipt Date: 20220517
  Transmission Date: 20220721
  Serious: No
  Sender: FDA-Public Use
  Company Number: US-PFIZER INC-202101482934

PATIENT
  Age: 80 Year
  Sex: Female

DRUGS (3)
  1. CELONTIN [Suspect]
     Active Substance: METHSUXIMIDE
     Dosage: 300 MG
  2. PHENYTOIN [Suspect]
     Active Substance: PHENYTOIN
     Dosage: UNK
  3. DILANTIN [Suspect]
     Active Substance: PHENYTOIN
     Dosage: UNK

REACTIONS (3)
  - Asthenia [Unknown]
  - Dizziness [Unknown]
  - Loss of personal independence in daily activities [Unknown]
